FAERS Safety Report 11094658 (Version 3)
Quarter: 2015Q4

REPORT INFORMATION
  Report Type: Report from Study
  Country: DE (occurrence: DE)
  Receive Date: 20150506
  Receipt Date: 20151029
  Transmission Date: 20160304
  Serious: No
  Sender: FDA-Public Use
  Company Number: DE-MERCK-1505DEU000680

PATIENT
  Age: 45 Year
  Sex: Male

DRUGS (9)
  1. TRAMAL [Concomitant]
     Active Substance: TRAMADOL
     Indication: RASH
     Dosage: 15?, TID
  2. TRAMAL [Concomitant]
     Active Substance: TRAMADOL
     Indication: HYPERKERATOSIS
  3. IBUPROFEN. [Concomitant]
     Active Substance: IBUPROFEN
     Indication: RASH
     Dosage: 600 MG, TID
  4. XUSAL [Concomitant]
     Active Substance: LEVOCETIRIZINE DIHYDROCHLORIDE
     Indication: HYPERKERATOSIS
  5. PEMBROLIZUMAB. [Suspect]
     Active Substance: PEMBROLIZUMAB
     Indication: METASTATIC MALIGNANT MELANOMA
     Dosage: 2 MG/KG, Q3W
     Route: 042
     Dates: start: 20140905
  6. IBUPROFEN. [Concomitant]
     Active Substance: IBUPROFEN
     Indication: HYPERKERATOSIS
  7. XUSAL [Concomitant]
     Active Substance: LEVOCETIRIZINE DIHYDROCHLORIDE
     Indication: RASH
     Dosage: 5 MG, QPM
  8. PANTOZOL [Concomitant]
     Active Substance: PANTOPRAZOLE SODIUM
     Indication: HYPERKERATOSIS
  9. PANTOZOL [Concomitant]
     Active Substance: PANTOPRAZOLE SODIUM
     Indication: RASH
     Dosage: 20 MG, QAM

REACTIONS (1)
  - Lichenoid keratosis [Not Recovered/Not Resolved]

NARRATIVE: CASE EVENT DATE: 20150430
